FAERS Safety Report 19647453 (Version 6)
Quarter: 2021Q3

REPORT INFORMATION
  Report Type: Spontaneous
  Country: FR (occurrence: FR)
  Receive Date: 20210802
  Receipt Date: 20210904
  Transmission Date: 20211014
  Serious: Yes (Death, Other)
  Sender: FDA-Public Use
  Company Number: NVSC2021FR172004

PATIENT
  Age: 90 Year
  Sex: Male

DRUGS (11)
  1. METFORMIN [Suspect]
     Active Substance: METFORMIN HYDROCHLORIDE
     Indication: WRONG PATIENT
     Dosage: 1 G, QD (TOTAL)
     Route: 048
     Dates: start: 20210707
  2. ELIQUIS [Suspect]
     Active Substance: APIXABAN
     Indication: WRONG PATIENT RECEIVED PRODUCT
     Dosage: 5 MG, ONCE DAILY (TOTAL)
     Route: 048
     Dates: start: 20210707
  3. XARELTO [Suspect]
     Active Substance: RIVAROXABAN
     Indication: ARRHYTHMIA
     Dosage: 10 MG, QD (TOTAL)
     Route: 048
     Dates: start: 20210707
  4. TAMSULOSIN [Suspect]
     Active Substance: TAMSULOSIN
     Indication: WRONG PATIENT RECEIVED PRODUCT
     Dosage: 0.4 MG, QD (TOTAL)
     Route: 048
     Dates: start: 20210707
  5. LEVOTHYROX [Concomitant]
     Active Substance: LEVOTHYROXINE
     Indication: PRODUCT USED FOR UNKNOWN INDICATION
     Dosage: UNK
     Route: 065
  6. RAMIPRIL. [Suspect]
     Active Substance: RAMIPRIL
     Indication: WRONG PATIENT RECEIVED PRODUCT
     Dosage: 2.5 MG, QD (TOTAL)
     Route: 048
     Dates: start: 20210707
  7. MACROGOL [Concomitant]
     Active Substance: POLYETHYLENE GLYCOLS
     Indication: PRODUCT USED FOR UNKNOWN INDICATION
     Dosage: UNK (IN SACHET)
     Route: 065
  8. FUROSEMIDE. [Concomitant]
     Active Substance: FUROSEMIDE
     Indication: PRODUCT USED FOR UNKNOWN INDICATION
     Dosage: UNK
     Route: 065
  9. NEBIVOLOL. [Concomitant]
     Active Substance: NEBIVOLOL
     Indication: PRODUCT USED FOR UNKNOWN INDICATION
     Dosage: UNK
     Route: 065
  10. DOLIPRANE [Suspect]
     Active Substance: ACETAMINOPHEN
     Indication: WRONG PATIENT
     Dosage: 1 G, QD (TOTAL)
     Route: 048
     Dates: start: 20210707
  11. IRBESARTAN. [Concomitant]
     Active Substance: IRBESARTAN
     Indication: PRODUCT USED FOR UNKNOWN INDICATION
     Dosage: UNK
     Route: 065

REACTIONS (2)
  - Sudden death [Fatal]
  - Wrong patient received product [Fatal]

NARRATIVE: CASE EVENT DATE: 20210707
